FAERS Safety Report 16970953 (Version 3)
Quarter: 2019Q4

REPORT INFORMATION
  Report Type: Spontaneous
  Country: US (occurrence: US)
  Receive Date: 20191029
  Receipt Date: 20191108
  Transmission Date: 20200122
  Serious: Yes (Hospitalization, Other)
  Sender: FDA-Public Use
  Company Number: US-PFIZER INC-2019467790

PATIENT
  Age: 83 Year
  Sex: Male
  Weight: 85.28 kg

DRUGS (5)
  1. METOPROLOL. [Concomitant]
     Active Substance: METOPROLOL
     Indication: BLOOD PRESSURE MEASUREMENT
     Dosage: UNK
     Route: 065
  2. HEPARIN SODIUM. [Suspect]
     Active Substance: HEPARIN SODIUM
     Dosage: UNK
     Route: 065
  3. ELIQUIS [Suspect]
     Active Substance: APIXABAN
     Dosage: UNK
     Route: 065
     Dates: end: 201910
  4. CLOPIDOGREL BISULFATE. [Suspect]
     Active Substance: CLOPIDOGREL BISULFATE
     Dosage: UNK
     Route: 065
     Dates: end: 201910
  5. ASPIRIN. [Suspect]
     Active Substance: ASPIRIN
     Dosage: UNK
     Route: 065

REACTIONS (6)
  - Renal disorder [Unknown]
  - Procedural haemorrhage [Unknown]
  - Off label use [Unknown]
  - Cerebrovascular accident [Unknown]
  - Weight fluctuation [Unknown]
  - Swelling [Unknown]

NARRATIVE: CASE EVENT DATE: 201910
